FAERS Safety Report 13913748 (Version 1)
Quarter: 2017Q3

REPORT INFORMATION
  Report Type: Spontaneous
  Country: FR (occurrence: FR)
  Receive Date: 20170829
  Receipt Date: 20170829
  Transmission Date: 20171127
  Serious: Yes (Death, Other)
  Sender: FDA-Public Use
  Company Number: FR-MYLANLABS-2017M1052655

PATIENT
  Age: 63 Year
  Sex: Male

DRUGS (36)
  1. BICNU [Suspect]
     Active Substance: CARMUSTINE
     Indication: TRANSPLANT
     Dosage: 579 MG, ONCE
     Route: 042
     Dates: start: 20161104, end: 20161104
  2. MESNA. [Suspect]
     Active Substance: MESNA
     Dosage: UNK
     Dates: start: 20161109
  3. ZOPHREN [Suspect]
     Active Substance: ONDANSETRON
     Dosage: UNK
     Dates: start: 20161105
  4. MESNA. [Suspect]
     Active Substance: MESNA
     Indication: PRODUCT USED FOR UNKNOWN INDICATION
     Dosage: UNK
     Route: 042
     Dates: start: 20161105
  5. TIORFAN [Suspect]
     Active Substance: RACECADOTRIL
     Indication: PRODUCT USED FOR UNKNOWN INDICATION
     Dosage: UNK
     Dates: start: 20161107
  6. AXEPIM [Suspect]
     Active Substance: CEFEPIME HYDROCHLORIDE
     Indication: PRODUCT USED FOR UNKNOWN INDICATION
     Dosage: 2 G, UNK
     Dates: start: 20161108
  7. ROVAMYCINE [Suspect]
     Active Substance: SPIRAMYCIN
     Indication: PRODUCT USED FOR UNKNOWN INDICATION
     Dosage: 1.5 MU
     Dates: start: 20161108
  8. CYTARABINE. [Suspect]
     Active Substance: CYTARABINE
     Dosage: 386 MG, 1 IN 12 HOURS
     Route: 042
     Dates: start: 20161105, end: 20161108
  9. PRIMPERAN [Suspect]
     Active Substance: METOCLOPRAMIDE HYDROCHLORIDE
     Indication: PRODUCT USED FOR UNKNOWN INDICATION
     Dosage: UNK
     Dates: start: 20161107
  10. LASILIX [Suspect]
     Active Substance: FUROSEMIDE
     Dosage: 100 MG, UNK
     Dates: start: 20161109
  11. ETOPOPHOS [Concomitant]
     Active Substance: ETOPOSIDE PHOSPHATE
     Indication: TRANSPLANT
     Dosage: 193 MG, 1 IN 12 HOURS
     Route: 042
     Dates: start: 20161105, end: 20161106
  12. ETOPOSIDE MYLAN 20 MG/ML, SOLUTION ? DILUER POUR PERFUSION [Suspect]
     Active Substance: ETOPOSIDE
     Dosage: 193 MG, 1 IN 12 HOURS
     Route: 042
     Dates: start: 20161107, end: 20161108
  13. CYTARABINE. [Suspect]
     Active Substance: CYTARABINE
     Indication: TRANSPLANT
     Dosage: 200 MG/M2, TID
     Dates: start: 20161104
  14. ZOPHREN [Suspect]
     Active Substance: ONDANSETRON
     Indication: PRODUCT USED FOR UNKNOWN INDICATION
     Dosage: UNK
     Dates: start: 20161104
  15. MESNA. [Suspect]
     Active Substance: MESNA
     Dosage: UNK
     Dates: start: 20161107
  16. MESNA. [Suspect]
     Active Substance: MESNA
     Dosage: UNK
     Dates: start: 20161108
  17. EMEND [Suspect]
     Active Substance: APREPITANT
     Dosage: 80 MG, UNK
     Dates: start: 20161108
  18. PRIMPERAN [Suspect]
     Active Substance: METOCLOPRAMIDE HYDROCHLORIDE
     Dosage: UNK
     Dates: start: 20161108
  19. ZOPHREN [Suspect]
     Active Substance: ONDANSETRON
     Dosage: UNK
     Dates: start: 20161108
  20. MESNA. [Suspect]
     Active Substance: MESNA
     Dosage: UNK
     Dates: start: 20161106
  21. SMECTA [Suspect]
     Active Substance: MONTMORILLONITE
     Indication: PRODUCT USED FOR UNKNOWN INDICATION
     Dosage: UNK
     Dates: start: 20161107
  22. SMECTA [Suspect]
     Active Substance: MONTMORILLONITE
     Dosage: UNK
     Dates: start: 20161108
  23. AMIKLIN [Suspect]
     Active Substance: AMIKACIN SULFATE
     Indication: PRODUCT USED FOR UNKNOWN INDICATION
     Dosage: 1.500 MG, UNK
     Dates: start: 20161108
  24. CYCLOPHOSPHAMIDE. [Suspect]
     Active Substance: CYCLOPHOSPHAMIDE
     Indication: PRODUCT USED FOR UNKNOWN INDICATION
     Dosage: UNK
  25. ZOPHREN [Suspect]
     Active Substance: ONDANSETRON
     Dosage: UNK
     Dates: start: 20161106
  26. ZOPHREN [Suspect]
     Active Substance: ONDANSETRON
     Dosage: UNK
     Dates: start: 20161107
  27. SOLU-MEDROL [Suspect]
     Active Substance: METHYLPREDNISOLONE SODIUM SUCCINATE
     Indication: PRODUCT USED FOR UNKNOWN INDICATION
     Dosage: UNK
     Dates: start: 20161105
  28. SOLU-MEDROL [Suspect]
     Active Substance: METHYLPREDNISOLONE SODIUM SUCCINATE
     Dosage: UNK
     Dates: start: 20161108
  29. EMEND [Suspect]
     Active Substance: APREPITANT
     Indication: PRODUCT USED FOR UNKNOWN INDICATION
     Dosage: 125 MG, UNK
     Dates: start: 20161107
  30. TIORFAN [Suspect]
     Active Substance: RACECADOTRIL
     Dosage: UNK
     Dates: start: 20161108
  31. CARMUSTINE [Suspect]
     Active Substance: CARMUSTINE
     Indication: PRODUCT USED FOR UNKNOWN INDICATION
     Dosage: UNK
  32. SOLU-MEDROL [Suspect]
     Active Substance: METHYLPREDNISOLONE SODIUM SUCCINATE
     Dosage: UNK
     Dates: start: 20161106
  33. SOLU-MEDROL [Suspect]
     Active Substance: METHYLPREDNISOLONE SODIUM SUCCINATE
     Dosage: UNK
     Dates: start: 20161107
  34. ETOPOSIDE MYLAN 20 MG/ML, SOLUTION ? DILUER POUR PERFUSION [Suspect]
     Active Substance: ETOPOSIDE
     Indication: TRANSPLANT
     Dosage: 100 MG/M2, BID
     Dates: start: 20161104
  35. ENDOXAN [Suspect]
     Active Substance: CYCLOPHOSPHAMIDE
     Indication: TRANSPLANT
     Dosage: 2895 MG, ONCE
     Route: 042
     Dates: start: 20161105, end: 20161108
  36. LASILIX [Suspect]
     Active Substance: FUROSEMIDE
     Indication: PRODUCT USED FOR UNKNOWN INDICATION
     Dosage: 60 MG, UNK
     Dates: start: 20161108

REACTIONS (2)
  - Cardiotoxicity [Fatal]
  - Pulmonary toxicity [Fatal]

NARRATIVE: CASE EVENT DATE: 20161108
